FAERS Safety Report 23182763 (Version 2)
Quarter: 2024Q2

REPORT INFORMATION
  Report Type: Report from Study
  Country: DE (occurrence: DE)
  Receive Date: 20231114
  Receipt Date: 20240614
  Transmission Date: 20240716
  Serious: Yes (Hospitalization, Other)
  Sender: FDA-Public Use
  Company Number: DE-MYLANLABS-2023M1106226

PATIENT
  Age: 68 Year
  Sex: Female

DRUGS (11)
  1. METHOTREXATE [Suspect]
     Active Substance: METHOTREXATE
     Indication: Rheumatoid arthritis
     Dosage: 10 MILLIGRAM
     Dates: start: 20220802
  2. METHOTREXATE [Suspect]
     Active Substance: METHOTREXATE
     Indication: Rheumatoid arthritis
     Dosage: 10 MILLIGRAM
     Dates: start: 20230202
  3. METHOTREXATE [Suspect]
     Active Substance: METHOTREXATE
     Indication: Rheumatoid arthritis
     Dosage: 15 MILLIGRAM
     Dates: start: 20200603
  4. METHOTREXATE [Suspect]
     Active Substance: METHOTREXATE
     Indication: Rheumatoid arthritis
     Dosage: 10 MILLIGRAM
     Dates: start: 20210601
  5. METHOTREXATE [Suspect]
     Active Substance: METHOTREXATE
     Indication: Rheumatoid arthritis
     Dosage: 10 MILLIGRAM
     Dates: start: 20211116
  6. METHOTREXATE [Suspect]
     Active Substance: METHOTREXATE
     Indication: Rheumatoid arthritis
     Dosage: 15 MILLIGRAM
     Dates: start: 20191210
  7. METHOTREXATE [Suspect]
     Active Substance: METHOTREXATE
     Indication: Rheumatoid arthritis
     Dosage: 10 MILLIGRAM
     Dates: start: 20190910
  8. METHOTREXATE [Suspect]
     Active Substance: METHOTREXATE
     Indication: Rheumatoid arthritis
     Dosage: 10 MILLIGRAM
     Dates: start: 20210305
  9. METHOTREXATE [Suspect]
     Active Substance: METHOTREXATE
     Indication: Rheumatoid arthritis
     Dosage: 10 MILLIGRAM
     Dates: start: 20190704
  10. HYRIMOZ [Concomitant]
     Active Substance: ADALIMUMAB-ADAZ
     Indication: Rheumatoid arthritis
     Dosage: 40 MILLIGRAM
     Dates: start: 202006, end: 202008
  11. ADALIMUMAB [Concomitant]
     Active Substance: ADALIMUMAB\ISOPROPYL ALCOHOL
     Indication: Rheumatoid arthritis
     Dosage: 40 MILLIGRAM
     Dates: start: 201907, end: 202006

REACTIONS (9)
  - Hypertensive crisis [Recovered/Resolved]
  - COVID-19 [Unknown]
  - Diverticulum intestinal [Unknown]
  - Aortitis [Not Recovered/Not Resolved]
  - Terminal ileitis [Not Recovered/Not Resolved]
  - Hiatus hernia [Unknown]
  - Gastric ulcer [Unknown]
  - Haemorrhoids [Unknown]
  - Reactive gastropathy [Unknown]

NARRATIVE: CASE EVENT DATE: 20221020
